FAERS Safety Report 25535025 (Version 3)
Quarter: 2025Q4

REPORT INFORMATION
  Report Type: Report from Study
  Country: CA (occurrence: CA)
  Receive Date: 20250709
  Receipt Date: 20251123
  Transmission Date: 20260117
  Serious: Yes (Hospitalization, Other)
  Sender: ABBVIE
  Company Number: CA-ABBVIE-6358627

PATIENT
  Age: 58 Year
  Sex: Male
  Weight: 98.4 kg

DRUGS (1)
  1. RINVOQ [Suspect]
     Active Substance: UPADACITINIB
     Indication: Crohn^s disease
     Dosage: FORM STRENGTH 30 MILLIGRAM?LAST DOSE: ?16 NOV 2025
     Route: 048
     Dates: start: 20241024

REACTIONS (12)
  - Small intestinal obstruction [Recovered/Resolved]
  - Lymphocyte count decreased [Recovered/Resolved]
  - Renal injury [Recovered/Resolved]
  - Nausea [Recovered/Resolved]
  - White blood cell count increased [Recovered/Resolved]
  - C-reactive protein abnormal [Recovered/Resolved]
  - Neutrophil count abnormal [Recovered/Resolved]
  - Intestinal perforation [Unknown]
  - Crohn^s disease [Unknown]
  - Arthralgia [Unknown]
  - Neck pain [Unknown]
  - Stoma creation [Unknown]

NARRATIVE: CASE EVENT DATE: 20250618
